FAERS Safety Report 14511233 (Version 1)
Quarter: 2018Q1

REPORT INFORMATION
  Report Type: Spontaneous
  Country: US (occurrence: US)
  Receive Date: 20180208
  Receipt Date: 20180208
  Transmission Date: 20180509
  Serious: No
  Sender: FDA-Public Use
  Company Number: None

PATIENT
  Age: 86 Year
  Sex: Male
  Weight: 72.7 kg

DRUGS (1)
  1. OLODATEROL [Suspect]
     Active Substance: OLODATEROL
     Indication: ASTHMA
     Route: 055
     Dates: start: 20161228, end: 20161229

REACTIONS (2)
  - Tremor [None]
  - Asthenia [None]

NARRATIVE: CASE EVENT DATE: 20151229
